FAERS Safety Report 11397567 (Version 2)
Quarter: 2016Q2

REPORT INFORMATION
  Report Type: Spontaneous
  Country: PL (occurrence: PL)
  Receive Date: 20150819
  Receipt Date: 20160505
  Transmission Date: 20160815
  Serious: Yes (Other)
  Sender: FDA-Public Use
  Company Number: PL-APOTEX-2015AP011593

PATIENT
  Age: 34 Year
  Sex: Female

DRUGS (4)
  1. VENLAFAXINE [Suspect]
     Active Substance: VENLAFAXINE HYDROCHLORIDE
     Indication: SCHIZOPHRENIA
     Dosage: 75 MG, DAILY
  2. VENLAFAXINE [Suspect]
     Active Substance: VENLAFAXINE HYDROCHLORIDE
     Dosage: 37.5 MG, PER DAY
  3. OLANZAPINE. [Suspect]
     Active Substance: OLANZAPINE
     Indication: SCHIZOPHRENIA
     Dosage: 25 MG, DAILY
  4. SARCOSINE [Suspect]
     Active Substance: SARCOSINE
     Indication: SCHIZOPHRENIA
     Dosage: 2 G, QD

REACTIONS (2)
  - Hypomania [Recovered/Resolved]
  - Drug interaction [Unknown]
